FAERS Safety Report 9657834 (Version 1)
Quarter: 2013Q4

REPORT INFORMATION
  Report Type: Spontaneous
  Country: TR (occurrence: TR)
  Receive Date: 20131030
  Receipt Date: 20131030
  Transmission Date: 20140711
  Serious: Yes (Other)
  Sender: FDA-Public Use
  Company Number: TR-ROXANE LABORATORIES, INC.-2013-RO-01748RO

PATIENT
  Age: 44 Year
  Sex: Male

DRUGS (3)
  1. LITHIUM CARBONATE [Suspect]
     Indication: BIPOLAR DISORDER
     Dosage: 1200 MG
     Dates: start: 1987, end: 2009
  2. LITHIUM CARBONATE [Suspect]
     Dates: start: 2011, end: 2011
  3. SODIUM VALPROATE [Suspect]
     Indication: MANIA
     Dosage: 1500 MG
     Dates: start: 1997, end: 2011

REACTIONS (11)
  - Congenital cystic kidney disease [Unknown]
  - Mania [Unknown]
  - Blood creatinine increased [Not Recovered/Not Resolved]
  - Polyuria [Unknown]
  - Polydipsia [Unknown]
  - Venous insufficiency [Unknown]
  - Hepatic steatosis [Unknown]
  - Constipation [Unknown]
  - Haemorrhoids [Unknown]
  - Intestinal polyp [Unknown]
  - Diverticulitis [Unknown]
